FAERS Safety Report 7428371-2 (Version None)
Quarter: 2011Q2

REPORT INFORMATION
  Report Type: 
  Country: None (occurrence: None)
  Receive Date: 20110418
  Receipt Date: 20110418
  Transmission Date: 20111010
  Serious: Yes (Hospitalization)
  Sender: FDA-Public Use
  Company Number: None

PATIENT
  Age: 28 Year
  Sex: Male
  Weight: 90.7194 kg

DRUGS (7)
  1. BACTRIM DS [Suspect]
     Indication: BRONCHITIS
     Dates: start: 20100225, end: 20100225
  2. BACTRIM DS [Suspect]
     Indication: COUGH
     Dates: start: 20100225, end: 20100225
  3. BACTRIM DS [Suspect]
     Indication: BRONCHITIS
     Dates: start: 20100213, end: 20100218
  4. BACTRIM DS [Suspect]
     Indication: COUGH
     Dates: start: 20100213, end: 20100218
  5. MOXIFLOXACIN [Concomitant]
  6. ALBUTEROL [Concomitant]
  7. BETAMETHASONE DIPROPIONATE [Concomitant]

REACTIONS (13)
  - GENERALISED ERYTHEMA [None]
  - ASTHENIA [None]
  - HEART RATE INCREASED [None]
  - TREATMENT NONCOMPLIANCE [None]
  - SELF-MEDICATION [None]
  - FEELING HOT [None]
  - DIZZINESS [None]
  - VOMITING [None]
  - NAUSEA [None]
  - BLOOD PRESSURE DECREASED [None]
  - MYALGIA [None]
  - PYREXIA [None]
  - FLUSHING [None]
